FAERS Safety Report 16987825 (Version 3)
Quarter: 2019Q4

REPORT INFORMATION
  Report Type: Spontaneous
  Country: US (occurrence: US)
  Receive Date: 20191104
  Receipt Date: 20191203
  Transmission Date: 20200122
  Serious: Yes (Hospitalization, Other)
  Sender: FDA-Public Use
  Company Number: US-AUROBINDO-AUR-APL-2019-070152

PATIENT
  Age: 13 Month
  Sex: Male
  Weight: 2.3 kg

DRUGS (1)
  1. ACETAMINOPHEN. [Suspect]
     Active Substance: ACETAMINOPHEN
     Indication: RESPIRATORY SYNCYTIAL VIRUS INFECTION
     Dosage: 5 DOSAGE FORM TOTAL, (HE RECEIVED THREE DOSES OF ACETAMINOPHEN 10-15 MG/KG/DOSE)
     Route: 065

REACTIONS (9)
  - Hepatic fibrosis [Unknown]
  - Alpha 1 foetoprotein increased [Recovering/Resolving]
  - Aspartate aminotransferase increased [Unknown]
  - Toxicity to various agents [Recovering/Resolving]
  - Alanine aminotransferase increased [Unknown]
  - Hepatic failure [Recovering/Resolving]
  - Hepatosplenomegaly [Recovering/Resolving]
  - Hepatocellular injury [Unknown]
  - Splenomegaly [Recovered/Resolved]
